FAERS Safety Report 8456308 (Version 2)
Quarter: 2013Q2

REPORT INFORMATION
  Report Type: Spontaneous
  Country: US (occurrence: None)
  Receive Date: 20120221
  Receipt Date: 20120820
  Transmission Date: 20140414
  Serious: No
  Sender: FDA-Public Use
  Company Number: 1000027059

PATIENT
  Age: 80 Year
  Sex: Male

DRUGS (5)
  1. VIIBRYD [Suspect]
     Indication: DEPRESSION
     Dosage: 10 MG (10 MG,1 IN 1 D)
     Route: 048
     Dates: start: 201112, end: 201112
  2. METFORMIN HYDROCHLORIDE [Concomitant]
  3. NEXIUM (ESOMEPRAZOLE) [Concomitant]
  4. DIOVAN [Concomitant]
  5. TAMSULOS IN (TAMSULOSIN ) (TAMSULOS IN) [Concomitant]

REACTIONS (6)
  - DIARRHOEA [None]
  - Acne [None]
  - Hyperhidrosis [None]
  - Irritability [None]
  - Anxiety [None]
  - Insomnia [None]
